FAERS Safety Report 5057633-1 (Version None)
Quarter: 2006Q3

REPORT INFORMATION
  Report Type: 
  Country: None (occurrence: None)
  Receive Date: 20060721
  Receipt Date: 20051230
  Transmission Date: 20061208
  Serious: No
  Sender: FDA-Public Use
  Company Number: US-GLAXOSMITHKLINE-A0587811A

PATIENT
  Age: 80 Year
  Sex: Female

DRUGS (4)
  1. AVANDIA [Suspect]
     Dosage: 4MG TWICE PER DAY
     Route: 048
  2. STARLIX [Concomitant]
  3. VITAMINS [Concomitant]
  4. GLUCOVANCE [Concomitant]

REACTIONS (4)
  - ABDOMINAL DISTENSION [None]
  - EATING DISORDER [None]
  - GAIT DISTURBANCE [None]
  - WEIGHT INCREASED [None]
